FAERS Safety Report 13625772 (Version 1)
Quarter: 2017Q2

REPORT INFORMATION
  Report Type: Spontaneous
  Country: BR (occurrence: BR)
  Receive Date: 20170608
  Receipt Date: 20170608
  Transmission Date: 20170830
  Serious: Yes (Hospitalization)
  Sender: FDA-Public Use
  Company Number: BR-FRESENIUS KABI-FK201704890

PATIENT
  Age: 21 Year
  Sex: Female

DRUGS (1)
  1. GENTAMYCIN 40 MG / ML [Suspect]
     Active Substance: GENTAMICIN
     Indication: PULMONARY SEPSIS
     Route: 042
     Dates: start: 20170528, end: 20170529

REACTIONS (1)
  - Lip oedema [Recovered/Resolved]

NARRATIVE: CASE EVENT DATE: 20170528
